FAERS Safety Report 21711866 (Version 1)
Quarter: 2022Q4

REPORT INFORMATION
  Report Type: Other
  Country: FR (occurrence: FR)
  Receive Date: 20221212
  Receipt Date: 20221212
  Transmission Date: 20230112
  Serious: Yes (Hospitalization)
  Sender: FDA-Public Use
  Company Number: None

PATIENT

DRUGS (3)
  1. AMIODARONE [Suspect]
     Active Substance: AMIODARONE
     Indication: Supraventricular tachycardia
     Dosage: 120 MILLIGRAM
     Route: 048
     Dates: start: 20221024, end: 20221024
  2. ADENOSINE TRIPHOSPHATE [Suspect]
     Active Substance: ADENOSINE TRIPHOSPHATE
     Indication: Supraventricular tachycardia
     Dosage: 4 MILLIGRAM
     Route: 042
     Dates: start: 20221024, end: 20221024
  3. PROPOFOL LIPURO [Suspect]
     Active Substance: PROPOFOL
     Indication: Supraventricular tachycardia
     Dosage: 40 MILLIGRAM
     Route: 048
     Dates: start: 20221024, end: 20221024

REACTIONS (1)
  - Hyperphosphataemia [Recovered/Resolved]

NARRATIVE: CASE EVENT DATE: 20221024
